FAERS Safety Report 7436919-7 (Version None)
Quarter: 2011Q2

REPORT INFORMATION
  Report Type: 
  Country: None (occurrence: None)
  Receive Date: 20110426
  Receipt Date: 20110328
  Transmission Date: 20111010
  Serious: No
  Sender: FDA-Public Use
  Company Number: US-BAYER-2011-027390

PATIENT
  Age: 29 Year
  Sex: Female

DRUGS (1)
  1. MIRENA [Suspect]
     Indication: CONTRACEPTION
     Dosage: 20 ?G/D, CONT
     Route: 015
     Dates: start: 20080301, end: 20110328

REACTIONS (5)
  - MEDICAL DEVICE COMPLICATION [None]
  - ABDOMINAL PAIN LOWER [None]
  - MENOMETRORRHAGIA [None]
  - VAGINAL HAEMORRHAGE [None]
  - COMPLICATION OF DEVICE REMOVAL [None]
